FAERS Safety Report 10771442 (Version 1)
Quarter: 2015Q1

REPORT INFORMATION
  Report Type: Spontaneous
  Country: US (occurrence: US)
  Receive Date: 20150206
  Receipt Date: 20150206
  Transmission Date: 20150721
  Serious: Yes (Hospitalization, Disabling, Other)
  Sender: FDA-Public Use
  Company Number: US-GLAXOSMITHKLINE-US2015012611

PATIENT
  Sex: Male

DRUGS (1)
  1. PROMACTA [Suspect]
     Active Substance: ELTROMBOPAG OLAMINE
     Indication: IMMUNE THROMBOCYTOPENIC PURPURA
     Dosage: 25 MG, QD
     Route: 048

REACTIONS (6)
  - Hepatic enzyme increased [Unknown]
  - Hepatitis acute [Unknown]
  - Hepatic lesion [Unknown]
  - Systemic lupus erythematosus [Unknown]
  - Renal failure [Unknown]
  - Drug ineffective [Unknown]
